FAERS Safety Report 9147139 (Version 1)
Quarter: 2013Q1

REPORT INFORMATION
  Report Type: Spontaneous
  Country: US (occurrence: None)
  Receive Date: 20130221
  Receipt Date: 20130221
  Transmission Date: 20140127
  Serious: Yes (Other)
  Sender: FDA-Public Use
  Company Number: TPA2012A08830

PATIENT
  Age: 62 Year
  Sex: Male
  Weight: 120.2 kg

DRUGS (4)
  1. ACTOS (PIOGLITAZONE HYDROCHLORIDE) [Suspect]
     Indication: TYPE 2 DIABETES MELLITUS
     Dates: start: 2009, end: 2010
  2. METFORMIN (METFORMIN) [Concomitant]
  3. LANTUS (INSULIN GLARGINE) [Concomitant]
  4. GLUCOTROL (GLIPIZIDE) [Concomitant]

REACTIONS (3)
  - Bladder cancer [None]
  - Renal disorder [None]
  - Sepsis [None]
